FAERS Safety Report 18871389 (Version 1)
Quarter: 2021Q1

REPORT INFORMATION
  Report Type: Spontaneous
  Country: GB (occurrence: GB)
  Receive Date: 20210210
  Receipt Date: 20210210
  Transmission Date: 20210420
  Serious: Yes (Other)
  Sender: FDA-Public Use
  Company Number: GB-BEH-2021128196

PATIENT
  Age: 42 Year
  Sex: Female
  Weight: 128 kg

DRUGS (1)
  1. ANTI?D IMMUNOGLOBULIN (INN) [Suspect]
     Active Substance: HUMAN RHO(D) IMMUNE GLOBULIN
     Indication: PRODUCT USED FOR UNKNOWN INDICATION
     Route: 065

REACTIONS (7)
  - Nausea [Unknown]
  - Abdominal pain upper [Not Recovered/Not Resolved]
  - Abdominal pain upper [Unknown]
  - Abdominal pain [Unknown]
  - Fatigue [Unknown]
  - Myalgia [Unknown]
  - Gastritis [Unknown]

NARRATIVE: CASE EVENT DATE: 20210128
